FAERS Safety Report 23650099 (Version 1)
Quarter: 2024Q1

REPORT INFORMATION
  Report Type: Spontaneous
  Country: US (occurrence: None)
  Receive Date: 20240319
  Receipt Date: 20240319
  Transmission Date: 20240410
  Serious: No
  Sender: FDA-Public Use
  Company Number: US-ROCHE-3493612

PATIENT
  Sex: Male

DRUGS (8)
  1. ERIVEDGE [Suspect]
     Active Substance: VISMODEGIB
     Indication: Basal cell carcinoma
     Dosage: TALE ONE CAPSULE BY MOUTH WHOLE WITH WATER WITH OR WITHOUT FOOD DAILY
     Route: 048
     Dates: start: 20240105
  2. ASPIRIN [Concomitant]
     Active Substance: ASPIRIN
  3. LEVOTHYROXINE [Concomitant]
     Active Substance: LEVOTHYROXINE\LEVOTHYROXINE SODIUM
  4. LISINOPRIL [Concomitant]
     Active Substance: LISINOPRIL
  5. METOPROLOL [Concomitant]
     Active Substance: METOPROLOL
  6. REPATHA [Concomitant]
     Active Substance: EVOLOCUMAB
     Dosage: STRENGTH: 140 MG/ML
  7. TAMSULOSIN [Concomitant]
     Active Substance: TAMSULOSIN
  8. TESTOSTERONE [Concomitant]
     Active Substance: TESTOSTERONE
     Dosage: STRENGTH: 200 MG/ML; SOLUTION

REACTIONS (2)
  - Headache [Not Recovered/Not Resolved]
  - Pruritus [Not Recovered/Not Resolved]
